FAERS Safety Report 6303219-8 (Version None)
Quarter: 2009Q3

REPORT INFORMATION
  Report Type: 
  Country: None (occurrence: None)
  Receive Date: 20090810
  Receipt Date: 20090121
  Transmission Date: 20100115
  Serious: No
  Sender: FDA-Public Use
  Company Number: A0765126A

PATIENT
  Sex: Male

DRUGS (2)
  1. PAXIL [Suspect]
     Route: 065
  2. WELLBUTRIN [Suspect]
     Route: 065

REACTIONS (1)
  - SOMNOLENCE [None]
